FAERS Safety Report 8187330-5 (Version None)
Quarter: 2012Q1

REPORT INFORMATION
  Report Type: 
  Country: None (occurrence: None)
  Receive Date: 20120306
  Receipt Date: 20120223
  Transmission Date: 20120608
  Serious: Yes (Hospitalization)
  Sender: FDA-Public Use
  Company Number: US-ROCHE-1044017

PATIENT
  Sex: Female
  Weight: 63.106 kg

DRUGS (3)
  1. LOVENOX [Concomitant]
     Indication: THROMBOSIS
     Route: 058
  2. XELODA [Suspect]
     Indication: BREAST CANCER METASTATIC
     Route: 048
     Dates: start: 20110131, end: 20120208
  3. VITAMIN TAB [Concomitant]
     Route: 048

REACTIONS (6)
  - DIARRHOEA [None]
  - HEART RATE INCREASED [None]
  - URTICARIA [None]
  - RASH [None]
  - PAIN IN EXTREMITY [None]
  - ABDOMINAL PAIN [None]
